FAERS Safety Report 5793039-5 (Version None)
Quarter: 2008Q2

REPORT INFORMATION
  Report Type: 
  Country: None (occurrence: None)
  Receive Date: 20080627
  Receipt Date: 20080624
  Transmission Date: 20081010
  Serious: Yes (Other)
  Sender: FDA-Public Use
  Company Number: IT-AVENTIS-200811086EU

PATIENT
  Age: 68 Year
  Sex: Male

DRUGS (5)
  1. CLEXANE [Suspect]
     Indication: DEEP VEIN THROMBOSIS
     Route: 058
     Dates: start: 20071115, end: 20080201
  2. TRIATEC HCT [Suspect]
     Indication: DRUG USE FOR UNKNOWN INDICATION
     Route: 048
     Dates: start: 20070101, end: 20080201
  3. CIPROXIN                           /00697201/ [Suspect]
     Indication: DRUG USE FOR UNKNOWN INDICATION
     Route: 042
     Dates: start: 20071101, end: 20071130
  4. COUMADIN [Concomitant]
     Dosage: DOSE: UNK
     Route: 048
     Dates: start: 20071225, end: 20080121
  5. EUTIROX                            /00068001/ [Concomitant]
     Dosage: DOSE: UNK
     Route: 048
     Dates: start: 20071130, end: 20080305

REACTIONS (1)
  - HENOCH-SCHONLEIN PURPURA [None]
